FAERS Safety Report 9580693 (Version 1)
Quarter: 2013Q4

REPORT INFORMATION
  Report Type: Spontaneous
  Country: GB (occurrence: GB)
  Receive Date: 20131002
  Receipt Date: 20131002
  Transmission Date: 20140711
  Serious: Yes (Other)
  Sender: FDA-Public Use
  Company Number: GB-PFIZER INC-2013276387

PATIENT
  Sex: 0

DRUGS (1)
  1. INSPRA [Suspect]

REACTIONS (1)
  - Dysphagia [Unknown]
